FAERS Safety Report 23676536 (Version 1)
Quarter: 2024Q1

REPORT INFORMATION
  Report Type: Other
  Country: BR (occurrence: None)
  Receive Date: 20240327
  Receipt Date: 20240327
  Transmission Date: 20240410
  Serious: No
  Sender: FDA-Public Use
  Company Number: BR-ROCHE-3533521

PATIENT
  Age: 39 Year
  Sex: Female
  Weight: 75 kg

DRUGS (2)
  1. OCREVUS [Suspect]
     Active Substance: OCRELIZUMAB
     Indication: Multiple sclerosis
     Route: 065
     Dates: start: 2022
  2. GABAPENTIN [Concomitant]
     Active Substance: GABAPENTIN
     Dosage: 3 TABLETS PER DAY
     Route: 042

REACTIONS (1)
  - Dengue fever [Unknown]

NARRATIVE: CASE EVENT DATE: 20240314
